FAERS Safety Report 24250192 (Version 3)
Quarter: 2024Q4

REPORT INFORMATION
  Report Type: Spontaneous
  Country: US (occurrence: US)
  Receive Date: 20240826
  Receipt Date: 20241029
  Transmission Date: 20250115
  Serious: Yes (Other)
  Sender: BRISTOL-MYERS SQUIBB COMPANY
  Company Number: US-BRISTOL-MYERS SQUIBB COMPANY-2024-129911

PATIENT
  Age: 80 Year
  Sex: Male

DRUGS (2)
  1. POMALYST [Suspect]
     Active Substance: POMALIDOMIDE
     Indication: Plasma cell myeloma
     Dosage: DAILY FOR 21 DAYS THEN 7 DAYS OFF
     Route: 048
  2. POMALYST [Suspect]
     Active Substance: POMALIDOMIDE
     Dosage: DAILY FOR 21 DAYS
     Route: 048

REACTIONS (8)
  - Blood pressure decreased [Unknown]
  - Plasma cell myeloma [Unknown]
  - Gait inability [Unknown]
  - Balance disorder [Unknown]
  - Cognitive disorder [Unknown]
  - Quality of life decreased [Unknown]
  - Weight decreased [Unknown]
  - Dehydration [Unknown]
